FAERS Safety Report 6139380-8 (Version None)
Quarter: 2009Q2

REPORT INFORMATION
  Report Type: 
  Country: None (occurrence: None)
  Receive Date: 20090401
  Receipt Date: 20090301
  Transmission Date: 20091009
  Serious: No
  Sender: FDA-Public Use
  Company Number: US-BAYER-200837345NA

PATIENT
  Age: 36 Year
  Sex: Female

DRUGS (2)
  1. MIRENA [Suspect]
     Indication: DRUG USE FOR UNKNOWN INDICATION
     Dosage: CONTINUOUS
     Route: 015
  2. MIRENA [Suspect]
     Dosage: CONTINUOUS
     Route: 015

REACTIONS (2)
  - DISCOMFORT [None]
  - IUCD COMPLICATION [None]
